FAERS Safety Report 8686449 (Version 6)
Quarter: 2013Q2

REPORT INFORMATION
  Report Type: Spontaneous
  Country: US (occurrence: US)
  Receive Date: 20120726
  Receipt Date: 20130610
  Transmission Date: 20140414
  Serious: Yes (Other)
  Sender: FDA-Public Use
  Company Number: US-ASTRAZENECA-2011SE56079

PATIENT
  Age: 24694 Day
  Sex: Male
  Weight: 72.6 kg

DRUGS (21)
  1. SEROQUEL XR [Suspect]
     Indication: BIPOLAR DISORDER
     Route: 048
     Dates: start: 201109, end: 201204
  2. SEROQUEL XR [Suspect]
     Indication: BIPOLAR I DISORDER
     Route: 048
     Dates: start: 201109, end: 201204
  3. SEROQUEL XR [Suspect]
     Indication: BIPOLAR DISORDER
     Route: 048
     Dates: end: 20120925
  4. SEROQUEL XR [Suspect]
     Indication: BIPOLAR I DISORDER
     Route: 048
     Dates: end: 20120925
  5. SEROQUEL XR [Suspect]
     Indication: BIPOLAR DISORDER
     Route: 048
     Dates: end: 20121016
  6. SEROQUEL XR [Suspect]
     Indication: BIPOLAR I DISORDER
     Route: 048
     Dates: end: 20121016
  7. SEROQUEL XR [Suspect]
     Indication: BIPOLAR DISORDER
     Route: 048
     Dates: end: 201211
  8. SEROQUEL XR [Suspect]
     Indication: BIPOLAR I DISORDER
     Route: 048
     Dates: end: 201211
  9. ZESTRIL [Suspect]
     Route: 048
  10. DEPAKOTE [Concomitant]
  11. CITALOPRAM [Concomitant]
  12. POTASSIUM [Concomitant]
  13. CENTRUM VITAMIN [Concomitant]
  14. CLONAZEPAM [Concomitant]
     Indication: ANXIETY
     Route: 048
  15. CLONAZEPAM [Concomitant]
     Indication: ANXIETY
     Route: 048
  16. TRAZADONE [Concomitant]
     Indication: INSOMNIA
     Route: 048
  17. DIVALPROEX [Concomitant]
     Route: 048
  18. ESCITALOPRAM [Concomitant]
     Route: 048
  19. HYDROCODONE [Concomitant]
     Indication: PAIN
     Dosage: 10/500 MG TWO TIMES A DAY
     Route: 048
  20. KLOR CON [Concomitant]
     Indication: MEDICAL DIET
     Route: 048
  21. AMBIEN [Concomitant]
     Indication: INSOMNIA
     Route: 048

REACTIONS (11)
  - Suicidal ideation [Unknown]
  - Frustration [Unknown]
  - Agitation [Not Recovered/Not Resolved]
  - Adverse event [Unknown]
  - Impatience [Not Recovered/Not Resolved]
  - Malaise [Unknown]
  - Violence-related symptom [Not Recovered/Not Resolved]
  - Discomfort [Unknown]
  - Depression [Recovered/Resolved]
  - Irritability [Recovered/Resolved]
  - Drug dose omission [Unknown]
